FAERS Safety Report 10264791 (Version 1)
Quarter: 2014Q2

REPORT INFORMATION
  Report Type: Spontaneous
  Country: US (occurrence: US)
  Receive Date: 20140627
  Receipt Date: 20140627
  Transmission Date: 20141212
  Serious: No
  Sender: FDA-Public Use
  Company Number: US-TEVA-491120USA

PATIENT
  Sex: Male

DRUGS (1)
  1. COPAXONE 40MG [Suspect]
     Indication: MULTIPLE SCLEROSIS

REACTIONS (5)
  - Injection site pain [Recovering/Resolving]
  - Injection site mass [Recovering/Resolving]
  - Injection site swelling [Recovering/Resolving]
  - Injection site erythema [Recovering/Resolving]
  - Injection site bruising [Recovering/Resolving]
